FAERS Safety Report 5152521-4 (Version None)
Quarter: 2006Q4

REPORT INFORMATION
  Report Type: 
  Country: None (occurrence: None)
  Receive Date: 20061116
  Receipt Date: 20061108
  Transmission Date: 20070319
  Serious: Yes (Death, Life-Threatening, Hospitalization)
  Sender: FDA-Public Use
  Company Number: PK-ELI_LILLY_AND_COMPANY-PK200611001310

PATIENT
  Age: 70 Year
  Sex: Female

DRUGS (4)
  1. GEMZAR [Suspect]
     Indication: BREAST CANCER
     Dosage: 1200 MG, OTHER
     Route: 042
     Dates: start: 20061107
  2. NAVELBINE [Concomitant]
     Indication: ANTIEMETIC SUPPORTIVE CARE
     Dosage: 100 MG, UNKNOWN
     Dates: start: 20061107
  3. CISPLATIN [Concomitant]
     Indication: BREAST CANCER
     Dosage: 100 MG, UNKNOWN
     Route: 042
     Dates: start: 20061107
  4. TAVEGYL [Concomitant]
     Indication: ANTIALLERGIC THERAPY
     Dosage: UNK, UNKNOWN
     Dates: start: 20061107

REACTIONS (1)
  - ACUTE MYOCARDIAL INFARCTION [None]
